FAERS Safety Report 6670281-2 (Version None)
Quarter: 2010Q2

REPORT INFORMATION
  Report Type: 
  Country: None (occurrence: None)
  Receive Date: 20100405
  Receipt Date: 20100318
  Transmission Date: 20101027
  Serious: Yes (Hospitalization, Other)
  Sender: FDA-Public Use
  Company Number: 20100331

PATIENT
  Age: 32 Year
  Sex: Male

DRUGS (7)
  1. ALINIA [Suspect]
     Indication: GASTROENTERITIS CRYPTOSPORIDIAL
     Dosage: 500MG BID X 3WKS PO
     Route: 048
     Dates: start: 20090824, end: 20090830
  2. CELLCEPT [Suspect]
     Indication: IMMUNOSUPPRESSANT DRUG THERAPY
     Dosage: 50MG BID PO, 1.5MG BID PO
     Route: 048
  3. METHYLPREDNISOLONE ACETATE [Concomitant]
  4. PREDNISONE [Concomitant]
  5. AZITHROMYCIN [Concomitant]
  6. ESOMEPRAZOLE [Concomitant]
  7. ZOLPIDEM [Concomitant]

REACTIONS (3)
  - ANAEMIA [None]
  - DUODENAL ULCER [None]
  - OESOPHAGITIS ULCERATIVE [None]
